FAERS Safety Report 8775745 (Version 1)
Quarter: 2012Q4

REPORT INFORMATION
  Report Type: 
  Country: GB (occurrence: GB)
  Receive Date: 20120910
  Receipt Date: 20120910
  Transmission Date: 20130627
  Serious: Yes (Life-Threatening)
  Sender: FDA-Public Use
  Company Number: GB-ROCHE-1119936

PATIENT
  Age: 71 Year
  Sex: Male

DRUGS (7)
  1. ROACTEMRA [Suspect]
     Indication: RHEUMATOID ARTHRITIS
     Route: 042
     Dates: start: 20120224, end: 20120517
  2. BENDROFLUMETHIAZIDE [Concomitant]
     Route: 048
  3. KAPAKE [Concomitant]
     Indication: RHEUMATOID ARTHRITIS
     Route: 048
  4. RISEDRONATE [Concomitant]
     Route: 048
  5. SIMVASTATIN [Concomitant]
     Route: 048
  6. THYROXINE [Concomitant]
     Route: 048
  7. TRAMADOL [Concomitant]
     Route: 048

REACTIONS (4)
  - Metastases to bone [Unknown]
  - Metastases to liver [Unknown]
  - Inflammation [Not Recovered/Not Resolved]
  - Metastases to lung [Not Recovered/Not Resolved]
